FAERS Safety Report 8506450-6 (Version None)
Quarter: 2012Q3

REPORT INFORMATION
  Report Type: 
  Country: None (occurrence: None)
  Receive Date: 20120706
  Receipt Date: 20120706
  Transmission Date: 20120928
  Serious: Yes (Other)
  Sender: FDA-Public Use
  Company Number: None

PATIENT
  Age: 54 Year
  Sex: Female

DRUGS (1)
  1. ENBREL [Suspect]
     Indication: PRODUCT USED FOR UNKNOWN INDICATION
     Dosage: 50MG WEEKLY SUBCUTANEOUS
     Route: 058
     Dates: start: 20120329, end: 20120702

REACTIONS (1)
  - WHITE BLOOD CELL COUNT DECREASED [None]
